FAERS Safety Report 17008738 (Version 2)
Quarter: 2019Q4

REPORT INFORMATION
  Report Type: Spontaneous
  Country: NL (occurrence: NL)
  Receive Date: 20191108
  Receipt Date: 20191112
  Transmission Date: 20200122
  Serious: Yes (Other)
  Sender: FDA-Public Use
  Company Number: NL-ACS-001552

PATIENT
  Age: 7 Year
  Sex: Male

DRUGS (2)
  1. CILASTATIN, IMIPENEM [Suspect]
     Active Substance: CILASTATIN SODIUM\IMIPENEM
     Indication: MASTOIDITIS
     Route: 042
  2. TIGECYCLINE. [Suspect]
     Active Substance: TIGECYCLINE
     Indication: MASTOIDITIS
     Dosage: IN 2 DOSES, DILUTION OF POWDER FORMULATIONS
     Route: 042

REACTIONS (3)
  - Off label use [Unknown]
  - Hepatotoxicity [Recovered/Resolved]
  - Hypertriglyceridaemia [Recovered/Resolved]
